FAERS Safety Report 14949327 (Version 6)
Quarter: 2019Q3

REPORT INFORMATION
  Report Type: Report from Study
  Country: US (occurrence: US)
  Receive Date: 20180529
  Receipt Date: 20190712
  Transmission Date: 20191004
  Serious: Yes (Hospitalization)
  Sender: FDA-Public Use
  Company Number: US-ACTELION-A-NJ2018-172609

PATIENT
  Age: 62 Year
  Sex: Female

DRUGS (18)
  1. ATORVASTATIN [Concomitant]
     Active Substance: ATORVASTATIN
     Dosage: 80 MG
     Dates: start: 20190505
  2. POTASSIUM CHLORIDE. [Concomitant]
     Active Substance: POTASSIUM CHLORIDE
     Dosage: 10 MEQ
     Dates: start: 20190505
  3. OPSUMIT [Suspect]
     Active Substance: MACITENTAN
     Indication: PULMONARY ARTERIAL HYPERTENSION
     Dosage: 10 MG, QD
     Route: 048
     Dates: start: 20180427
  4. MYCOPHENOLATE [Concomitant]
     Active Substance: MYCOPHENOLIC ACID
     Dosage: 500 MG
     Dates: start: 20190505
  5. OXYGEN. [Concomitant]
     Active Substance: OXYGEN
     Route: 045
  6. ASPIRIN. [Concomitant]
     Active Substance: ASPIRIN
     Dosage: 81 MG
     Dates: start: 20190505
  7. FUROSEMIDE. [Concomitant]
     Active Substance: FUROSEMIDE
  8. GABAPENTIN. [Concomitant]
     Active Substance: GABAPENTIN
     Dosage: 100 MG
     Dates: start: 20190505
  9. AMLODIPINE BENAZEPRIL [Concomitant]
     Active Substance: AMLODIPINE BESYLATE\BENAZEPRIL HYDROCHLORIDE
  10. CLONAZEPAM. [Concomitant]
     Active Substance: CLONAZEPAM
     Dosage: 0.5 MG
     Dates: start: 20190505
  11. SILDENAFIL. [Concomitant]
     Active Substance: SILDENAFIL
  12. PREDNISONE. [Concomitant]
     Active Substance: PREDNISONE
  13. ALBUTEROL. [Concomitant]
     Active Substance: ALBUTEROL
     Dosage: 90 MCG
     Dates: start: 20190505
  14. BUPROPION. [Concomitant]
     Active Substance: BUPROPION
     Dosage: 150 MG
     Dates: start: 20190505
  15. SPIRONOLACTONE. [Concomitant]
     Active Substance: SPIRONOLACTONE
  16. TORSEMIDE. [Concomitant]
     Active Substance: TORSEMIDE
     Dosage: 20 MG
     Dates: start: 20190505
  17. BENZONATATE. [Concomitant]
     Active Substance: BENZONATATE
  18. PROAIR HFA [Concomitant]
     Active Substance: ALBUTEROL SULFATE

REACTIONS (18)
  - Blood alkaline phosphatase increased [Unknown]
  - Pneumonia [Recovered/Resolved]
  - Sputum discoloured [Unknown]
  - Rhinorrhoea [Unknown]
  - Malaise [Unknown]
  - Condition aggravated [Unknown]
  - Hilar lymphadenopathy [Unknown]
  - Pyrexia [Unknown]
  - Tachypnoea [Not Recovered/Not Resolved]
  - Cystic fibrosis [Unknown]
  - Tachycardia [Not Recovered/Not Resolved]
  - Blood bilirubin increased [Unknown]
  - Epistaxis [Recovered/Resolved]
  - Brain natriuretic peptide increased [Unknown]
  - Septic shock [Recovered/Resolved]
  - Mean arterial pressure [Not Recovered/Not Resolved]
  - Productive cough [Unknown]
  - Oropharyngeal pain [Unknown]

NARRATIVE: CASE EVENT DATE: 20180509
